FAERS Safety Report 5269709-4 (Version None)
Quarter: 2007Q1

REPORT INFORMATION
  Report Type: 
  Country: None (occurrence: None)
  Receive Date: 20070320
  Receipt Date: 20070307
  Transmission Date: 20070707
  Serious: Yes (Hospitalization, Other)
  Sender: FDA-Public Use
  Company Number: CA-ELI_LILLY_AND_COMPANY-CA200612000596

PATIENT
  Age: 78 Year
  Sex: Female

DRUGS (9)
  1. FORTEO [Suspect]
     Indication: OSTEOPOROSIS
     Dosage: 20 UG, DAILY (1/D)
     Route: 058
     Dates: start: 20060427
  2. FORTEO [Suspect]
     Dosage: 20 UG, QOD
     Route: 058
  3. MORPHINE [Concomitant]
     Dates: end: 20060101
  4. DIGOXIN [Concomitant]
  5. WARFARIN SODIUM [Concomitant]
     Dosage: 7.5 MG, DAILY (1/D)
  6. FUROSEMIDE [Concomitant]
  7. PREGABALIN [Concomitant]
  8. CALCIUM [Concomitant]
  9. VITAMIN D [Concomitant]

REACTIONS (5)
  - BRADYCARDIA [None]
  - CONFUSIONAL STATE [None]
  - CYSTITIS [None]
  - SEDATION [None]
  - VERTEBROPLASTY [None]
